FAERS Safety Report 7095845-6 (Version None)
Quarter: 2010Q4

REPORT INFORMATION
  Report Type: 
  Country: None (occurrence: None)
  Receive Date: 20101109
  Receipt Date: 20101109
  Transmission Date: 20110411
  Serious: Yes (Hospitalization)
  Sender: FDA-Public Use
  Company Number: None

PATIENT
  Age: 64 Year
  Sex: Male
  Weight: 133 kg

DRUGS (2)
  1. ENOXAPARIN SODIUM [Suspect]
     Indication: ATRIAL FIBRILLATION
     Dosage: 135 MG BID SQ
     Route: 058
     Dates: start: 20101015, end: 20101028
  2. WARFARIN [Suspect]
     Indication: ATRIAL FIBRILLATION
     Dates: start: 20101016, end: 20101028

REACTIONS (5)
  - ABDOMINAL PAIN [None]
  - ANAEMIA [None]
  - HAEMATOMA [None]
  - HAEMORRHAGE [None]
  - PURPURA [None]
